FAERS Safety Report 4746561-4 (Version None)
Quarter: 2005Q3

REPORT INFORMATION
  Report Type: 
  Country: None (occurrence: None)
  Receive Date: 20050816
  Receipt Date: 20050816
  Transmission Date: 20060218
  Serious: Yes (Other)
  Sender: FDA-Public Use
  Company Number: None

PATIENT
  Age: 56 Year
  Sex: Female
  Weight: 63.5036 kg

DRUGS (1)
  1. ASPIRIN FREE EXCEDRIN 500 MG ACETAMINOPHEN 65 MG CAFFEINE [Suspect]
     Indication: NEURALGIA
     Dosage: AVG 2 1/2 TABLETS PER DAY
     Dates: start: 20041101, end: 20050401

REACTIONS (2)
  - HEADACHE [None]
  - REBOUND EFFECT [None]
